FAERS Safety Report 21869934 (Version 1)
Quarter: 2023Q1

REPORT INFORMATION
  Report Type: Spontaneous
  Country: US (occurrence: US)
  Receive Date: 20230117
  Receipt Date: 20230117
  Transmission Date: 20230418
  Serious: Yes (Other)
  Sender: FDA-Public Use
  Company Number: US-DENTSPLY-2023SCDP000008

PATIENT
  Age: 55 Year
  Sex: Male

DRUGS (1)
  1. LIDOCAINE [Interacting]
     Active Substance: LIDOCAINE
     Indication: Procedural pain
     Dosage: 1 MG/KG/H LIDOCAINE INFUSION
     Route: 042

REACTIONS (7)
  - Unresponsive to stimuli [Unknown]
  - Oxygen saturation decreased [Unknown]
  - Tachycardia [Unknown]
  - Hypertension [Unknown]
  - Drug interaction [Unknown]
  - Toxicity to various agents [Unknown]
  - Drug level increased [Unknown]
